FAERS Safety Report 6595099-0 (Version None)
Quarter: 2010Q1

REPORT INFORMATION
  Report Type: 
  Country: None (occurrence: None)
  Receive Date: 20100212
  Receipt Date: 20100202
  Transmission Date: 20100710
  Serious: Yes (Hospitalization)
  Sender: FDA-Public Use
  Company Number: 2010SP003978

PATIENT
  Age: 41 Year
  Sex: Male

DRUGS (5)
  1. MIRTAZAPINE [Suspect]
     Indication: DEPRESSION
     Dosage: 7.5 MG; QD; PO, 15 MG; QD; PO, 15 MG, QD,PO
     Route: 048
     Dates: start: 20091019, end: 20091109
  2. MIRTAZAPINE [Suspect]
     Indication: DEPRESSION
     Dosage: 7.5 MG; QD; PO, 15 MG; QD; PO, 15 MG, QD,PO
     Route: 048
     Dates: start: 20091207, end: 20091221
  3. MIRTAZAPINE [Suspect]
     Indication: DEPRESSION
     Dosage: 7.5 MG; QD; PO, 15 MG; QD; PO, 15 MG, QD,PO
     Route: 048
     Dates: start: 20091013
  4. FLUVOXAMINE MALEATE [Concomitant]
  5. ALPRAZOLAM [Concomitant]

REACTIONS (2)
  - BLOOD TRIGLYCERIDES INCREASED [None]
  - HYPERLIPIDAEMIA [None]
